FAERS Safety Report 7551781-X (Version None)
Quarter: 2011Q2

REPORT INFORMATION
  Report Type: 
  Country: None (occurrence: None)
  Receive Date: 20110616
  Receipt Date: 20110609
  Transmission Date: 20111010
  Serious: Yes (Hospitalization)
  Sender: FDA-Public Use
  Company Number: B0725063A

PATIENT
  Sex: Female

DRUGS (12)
  1. ATARAX [Suspect]
     Dosage: 1UNIT PER DAY
     Route: 048
     Dates: start: 20110223, end: 20110224
  2. MOXIFLOXACIN HCL [Suspect]
     Indication: BRONCHITIS
     Route: 048
     Dates: start: 20110124, end: 20110130
  3. CELLULASE [Concomitant]
     Dosage: 1UNIT TWICE PER DAY
     Route: 048
  4. REPAGLINIDE [Concomitant]
     Dosage: 1MG PER DAY
     Route: 048
  5. CEFUROXIME SODIUM [Suspect]
     Indication: BRONCHITIS
     Dates: start: 20110204, end: 20110205
  6. RAMIPRIL [Concomitant]
     Indication: HYPERTENSION
     Route: 048
     Dates: end: 20110307
  7. FURADANTINE [Concomitant]
     Dosage: 50MG THREE TIMES PER DAY
     Route: 048
     Dates: start: 20110110, end: 20110201
  8. CLARITIN [Suspect]
     Route: 048
     Dates: start: 20110223, end: 20110224
  9. CLARITHROMYCIN [Suspect]
     Indication: BRONCHITIS
     Route: 048
     Dates: start: 20110131, end: 20110204
  10. MOTILIUM [Concomitant]
     Dosage: 1UNIT THREE TIMES PER DAY
  11. UMULINE [Concomitant]
     Dosage: 24UNIT PER DAY
     Route: 058
  12. HUMALOG [Concomitant]
     Route: 058

REACTIONS (6)
  - EOSINOPHILIA [None]
  - OROPHARYNGEAL DISCOMFORT [None]
  - HYPERSENSITIVITY [None]
  - LEUKOCYTOCLASTIC VASCULITIS [None]
  - OESOPHAGEAL DISCOMFORT [None]
  - URTICARIA [None]
